FAERS Safety Report 5226972-3 (Version None)
Quarter: 2007Q1

REPORT INFORMATION
  Report Type: 
  Country: None (occurrence: None)
  Receive Date: 20070201
  Receipt Date: 20070201
  Transmission Date: 20070707
  Serious: Yes (Hospitalization)
  Sender: FDA-Public Use
  Company Number: None

PATIENT
  Sex: Male
  Weight: 68.0396 kg

DRUGS (1)
  1. SEPTOCAINE [Suspect]
     Dosage: 3/4 CARPULE ONE TIME SUBQ DENTAL INJECTION
     Route: 058
     Dates: start: 20070123

REACTIONS (5)
  - CONTRAINDICATION TO MEDICAL TREATMENT [None]
  - GINGIVAL PAIN [None]
  - GINGIVAL SWELLING [None]
  - GINGIVITIS [None]
  - MEDICATION ERROR [None]
